FAERS Safety Report 6034249-1 (Version None)
Quarter: 2009Q1

REPORT INFORMATION
  Report Type: 
  Country: None (occurrence: None)
  Receive Date: 20090108
  Receipt Date: 20081223
  Transmission Date: 20090719
  Serious: Yes (Death)
  Sender: FDA-Public Use
  Company Number: 000107

PATIENT
  Age: 62 Year
  Sex: Male

DRUGS (2)
  1. ALPRAZOLAM [Suspect]
  2. RAMELTEON [Suspect]

REACTIONS (1)
  - COMPLETED SUICIDE [None]
